FAERS Safety Report 24845553 (Version 1)
Quarter: 2025Q1

REPORT INFORMATION
  Report Type: Spontaneous
  Country: SE (occurrence: SE)
  Receive Date: 20250115
  Receipt Date: 20250115
  Transmission Date: 20250409
  Serious: Yes (Hospitalization)
  Sender: EISAI
  Company Number: SE-Eisai-EC-2025-182140

PATIENT
  Age: 73 Year
  Sex: Female

DRUGS (6)
  1. LENVATINIB [Suspect]
     Active Substance: LENVATINIB
     Indication: Endometrial cancer
     Route: 048
     Dates: start: 202406, end: 2024
  2. LENVATINIB [Suspect]
     Active Substance: LENVATINIB
     Indication: Metastases to vagina
     Route: 048
     Dates: start: 2024
  3. LENVATINIB [Suspect]
     Active Substance: LENVATINIB
     Indication: Metastases to lung
  4. PEMBROLIZUMAB [Suspect]
     Active Substance: PEMBROLIZUMAB
     Indication: Endometrial cancer
     Route: 041
     Dates: start: 202406, end: 2024
  5. PEMBROLIZUMAB [Suspect]
     Active Substance: PEMBROLIZUMAB
     Indication: Metastases to vagina
     Route: 041
     Dates: start: 202407
  6. PEMBROLIZUMAB [Suspect]
     Active Substance: PEMBROLIZUMAB
     Indication: Metastases to lung

REACTIONS (10)
  - Decreased appetite [Unknown]
  - Fatigue [Unknown]
  - Gait disturbance [Unknown]
  - Tremor [Unknown]
  - Feeling hot [Unknown]
  - Hypertension [Unknown]
  - Hyperthyroidism [Recovered/Resolved]
  - Nausea [Unknown]
  - Diarrhoea [Unknown]
  - Heart rate increased [Unknown]

NARRATIVE: CASE EVENT DATE: 20240101
